FAERS Safety Report 7049971-8 (Version None)
Quarter: 2010Q4

REPORT INFORMATION
  Report Type: 
  Country: None (occurrence: None)
  Receive Date: 20101018
  Receipt Date: 20101005
  Transmission Date: 20110411
  Serious: Yes (Hospitalization, Other)
  Sender: FDA-Public Use
  Company Number: PHFR2010GB03712

PATIENT
  Sex: Male

DRUGS (1)
  1. NILOTINIB [Suspect]
     Indication: GASTROINTESTINAL STROMAL TUMOUR
     Dosage: 800 MG, UNK
     Route: 048
     Dates: start: 20100208, end: 20100824

REACTIONS (2)
  - CEREBROVASCULAR ACCIDENT [None]
  - HAEMATEMESIS [None]
